FAERS Safety Report 7139096-5 (Version None)
Quarter: 2010Q4

REPORT INFORMATION
  Report Type: 
  Country: None (occurrence: None)
  Receive Date: 20101206
  Receipt Date: 20101130
  Transmission Date: 20110411
  Serious: Yes (Other)
  Sender: FDA-Public Use
  Company Number: B0686717A

PATIENT
  Sex: Male
  Weight: 3.3 kg

DRUGS (1)
  1. DEROXAT [Suspect]
     Dates: start: 20090101, end: 20100716

REACTIONS (6)
  - CONJUNCTIVAL HAEMORRHAGE [None]
  - DRUG EXPOSURE DURING PREGNANCY [None]
  - ECCHYMOSIS [None]
  - HYPOTONIA [None]
  - RESPIRATORY DISTRESS [None]
  - WITHDRAWAL SYNDROME [None]
